FAERS Safety Report 5009574-3 (Version None)
Quarter: 2006Q2

REPORT INFORMATION
  Report Type: 
  Country: None (occurrence: None)
  Receive Date: 20060522
  Receipt Date: 20060510
  Transmission Date: 20061013
  Serious: Yes (Other)
  Sender: FDA-Public Use
  Company Number: 2006062514

PATIENT
  Sex: Female
  Weight: 84.8226 kg

DRUGS (2)
  1. ZANTAC [Suspect]
     Indication: DYSPEPSIA
     Dosage: 2 TABLETS 3 TIMES DAILY, ORAL
     Route: 048
     Dates: start: 19980101
  2. POTASSIUM (POTASSIUM) [Concomitant]

REACTIONS (1)
  - GASTRIC DISORDER [None]
